FAERS Safety Report 4335469-4 (Version None)
Quarter: 2004Q1

REPORT INFORMATION
  Report Type: 
  Country: None (occurrence: None)
  Receive Date: 20040330
  Receipt Date: 20031203
  Transmission Date: 20041129
  Serious: No
  Sender: FDA-Public Use
  Company Number: 27281

PATIENT
  Age: 81 Year
  Sex: Female

DRUGS (5)
  1. TRAVATAN [Suspect]
     Indication: OCULAR HYPERTENSION
     Dosage: 1 GTT OU QD OPHT
     Dates: start: 20030521, end: 20031119
  2. TIMOPTIC [Concomitant]
  3. CARDIZEM [Concomitant]
  4. VASOTEC [Concomitant]
  5. ASPIRIN [Concomitant]

REACTIONS (5)
  - BLOOD PRESSURE INCREASED [None]
  - EYE IRRITATION [None]
  - FEELING ABNORMAL [None]
  - GASTROINTESTINAL DISORDER [None]
  - POLLAKIURIA [None]
